FAERS Safety Report 23191620 (Version 1)
Quarter: 2023Q4

REPORT INFORMATION
  Report Type: Spontaneous
  Country: FR (occurrence: FR)
  Receive Date: 20231116
  Receipt Date: 20231116
  Transmission Date: 20240110
  Serious: Yes (Hospitalization)
  Sender: FDA-Public Use
  Company Number: None

PATIENT
  Age: 75 Year
  Sex: Male

DRUGS (4)
  1. GLIMEPIRIDE [Suspect]
     Active Substance: GLIMEPIRIDE
     Indication: Product used for unknown indication
     Dosage: 2 MILLIGRAM, 1 TOTAL (1 TAB OF 2 MG)
     Route: 048
     Dates: start: 20230517, end: 20230517
  2. CYAMEMAZINE [Concomitant]
     Active Substance: CYAMEMAZINE
     Dosage: 25 MILLIGRAM, 1 TOTAL (1 TAB OF 2 MG)
     Route: 048
     Dates: start: 20230517, end: 20230517
  3. TRIHEXYPHENIDYL HYDROCHLORIDE [Concomitant]
     Active Substance: TRIHEXYPHENIDYL HYDROCHLORIDE
     Dosage: 2 MILLIGRAM, 1 TOTAL (1 TAB OF 2 MG)
     Route: 048
     Dates: start: 20230517, end: 20230517
  4. ALPRAZOLAM [Concomitant]
     Active Substance: ALPRAZOLAM
     Dosage: 0.5 MILLIGRAM, 1 TOATL (1 TAB OF 0.5 MG)
     Route: 048
     Dates: start: 20230517, end: 20230517

REACTIONS (2)
  - Hypoglycaemia [Recovered/Resolved]
  - Wrong patient received product [Recovered/Resolved]

NARRATIVE: CASE EVENT DATE: 20230517
